FAERS Safety Report 14497802 (Version 1)
Quarter: 2018Q1

REPORT INFORMATION
  Report Type: Report from Study
  Country: US (occurrence: US)
  Receive Date: 20180207
  Receipt Date: 20180207
  Transmission Date: 20180509
  Serious: Yes (Hospitalization, Other)
  Sender: FDA-Public Use
  Company Number: US-GILEAD-2018-0319153

PATIENT
  Age: 46 Year
  Sex: Female

DRUGS (1)
  1. AMBRISENTAN [Suspect]
     Active Substance: AMBRISENTAN
     Indication: PULMONARY ARTERIAL HYPERTENSION
     Dosage: 10 MG, QD
     Route: 048
     Dates: start: 201408

REACTIONS (6)
  - Head discomfort [Unknown]
  - Pain in extremity [Unknown]
  - Productive cough [Unknown]
  - Loss of consciousness [Unknown]
  - Syncope [Unknown]
  - Pain [Unknown]

NARRATIVE: CASE EVENT DATE: 20180130
